FAERS Safety Report 21504011 (Version 1)
Quarter: 2022Q4

REPORT INFORMATION
  Report Type: Spontaneous
  Country: US (occurrence: None)
  Receive Date: 20221025
  Receipt Date: 20221025
  Transmission Date: 20230113
  Serious: Yes (Hospitalization)
  Sender: FDA-Public Use
  Company Number: None

PATIENT
  Sex: Female

DRUGS (4)
  1. HUMIRA [Suspect]
     Active Substance: ADALIMUMAB
     Indication: Psoriasis
     Route: 058
     Dates: start: 20220914
  2. HUMIRA [Suspect]
     Active Substance: ADALIMUMAB
     Indication: Dermatitis atopic
  3. HUMIRA [Suspect]
     Active Substance: ADALIMUMAB
     Indication: Psoriasis
     Dosage: FREQUENCY : EVERY OTHER WEEK;?
     Route: 058
     Dates: start: 202209
  4. HUMIRA [Suspect]
     Active Substance: ADALIMUMAB
     Indication: Dermatitis atopic

REACTIONS (2)
  - Hospitalisation [None]
  - Living in residential institution [None]
